FAERS Safety Report 6038828-7 (Version None)
Quarter: 2009Q1

REPORT INFORMATION
  Report Type: 
  Country: None (occurrence: None)
  Receive Date: 20090115
  Receipt Date: 20080822
  Transmission Date: 20090719
  Serious: No
  Sender: FDA-Public Use
  Company Number: US-BAYER-200813533BCC

PATIENT
  Age: 72 Year
  Sex: Female
  Weight: 62 kg

DRUGS (5)
  1. ALEVE [Suspect]
     Indication: RESTLESS LEGS SYNDROME
     Dosage: TOTAL DAILY DOSE: 440 MG  UNIT DOSE: 220 MG
     Route: 048
     Dates: start: 20080821
  2. NASONEX [Concomitant]
  3. FLOVENT [Concomitant]
  4. ATIVAN [Concomitant]
  5. GABAPENTIN [Concomitant]

REACTIONS (1)
  - INSOMNIA [None]
